FAERS Safety Report 8833199 (Version 1)
Quarter: 2012Q4

REPORT INFORMATION
  Report Type: 
  Country: ES (occurrence: ES)
  Receive Date: 20121010
  Receipt Date: 20121010
  Transmission Date: 20130627
  Serious: Yes (Death)
  Sender: FDA-Public Use
  Company Number: ES-CELGENEUS-144-50794-12100414

PATIENT
  Age: 55 Year
  Sex: Male

DRUGS (3)
  1. VIDAZA [Suspect]
     Indication: CHRONIC MYELOMONOCYTIC LEUKAEMIA
     Route: 065
  2. CYTARABINE [Concomitant]
     Indication: CHRONIC MYELOMONOCYTIC LEUKAEMIA
     Route: 065
  3. LEVOTHYROXINE [Concomitant]
     Indication: PRIMARY HYPOTHYROIDISM
     Route: 065

REACTIONS (1)
  - Chronic myelomonocytic leukaemia [Fatal]
